FAERS Safety Report 5345107-X (Version None)
Quarter: 2007Q2

REPORT INFORMATION
  Report Type: 
  Country: None (occurrence: None)
  Receive Date: 20070423
  Receipt Date: 20070222
  Transmission Date: 20071010
  Serious: Yes (Other)
  Sender: FDA-Public Use
  Company Number: 34688

PATIENT
  Age: 82 Year
  Sex: Female

DRUGS (1)
  1. OCTREOTIDE ACETATE [Suspect]
     Indication: GASTROINTESTINAL HAEMORRHAGE
     Dosage: 1.2 MG/240 ML VIA CONTINUOUS I

REACTIONS (1)
  - EXTRAVASATION [None]
